FAERS Safety Report 12215624 (Version 3)
Quarter: 2016Q2

REPORT INFORMATION
  Report Type: Spontaneous
  Country: US (occurrence: US)
  Receive Date: 20160328
  Receipt Date: 20160606
  Transmission Date: 20160815
  Serious: Yes (Hospitalization, Other)
  Sender: FDA-Public Use
  Company Number: US-SMITH AND NEPHEW, INC-2016SMT00255

PATIENT
  Age: 70 Year
  Sex: Male
  Weight: 122.45 kg

DRUGS (8)
  1. CARVEDILOL. [Concomitant]
     Active Substance: CARVEDILOL
  2. MIRAPEX [Concomitant]
     Active Substance: PRAMIPEXOLE DIHYDROCHLORIDE
  3. REGRANEX [Suspect]
     Active Substance: BECAPLERMIN
     Dosage: UNK
     Dates: start: 20160314
  4. UNSPECIFIED MEDICATIONS [Concomitant]
     Active Substance: UNSPECIFIED INGREDIENT
  5. REGRANEX [Suspect]
     Active Substance: BECAPLERMIN
     Indication: SKIN ULCER
     Dosage: UNK UNK, ONCE
     Route: 061
     Dates: start: 20160222, end: 20160222
  6. LYRICA [Concomitant]
     Active Substance: PREGABALIN
  7. ASACOL [Concomitant]
     Active Substance: MESALAMINE
  8. UNSPECIFIED BLOOD PRESSURE MEDICATION [Concomitant]
     Active Substance: UNSPECIFIED INGREDIENT

REACTIONS (5)
  - Pain [Unknown]
  - Off label use [Unknown]
  - Osteomyelitis [Unknown]
  - Infection [Recovering/Resolving]
  - Sepsis syndrome [Unknown]

NARRATIVE: CASE EVENT DATE: 20160222
